FAERS Safety Report 19739531 (Version 1)
Quarter: 2021Q3

REPORT INFORMATION
  Report Type: Spontaneous
  Country: US (occurrence: US)
  Receive Date: 20210824
  Receipt Date: 20210824
  Transmission Date: 20211014
  Serious: No
  Sender: FDA-Public Use
  Company Number: US-ASTRAZENECA-2021A646724

PATIENT
  Sex: Female
  Weight: 42.2 kg

DRUGS (1)
  1. BUDESONIDE AND FORMOTEROL [Suspect]
     Active Substance: BUDESONIDE\FORMOTEROL
     Indication: CHRONIC OBSTRUCTIVE PULMONARY DISEASE
     Dosage: 2 PUFFS TWICE A DAY
     Route: 055
     Dates: start: 20210629

REACTIONS (8)
  - Dyspnoea [Unknown]
  - Weight decreased [Unknown]
  - Mucosal disorder [Unknown]
  - Wheezing [Recovered/Resolved]
  - Ageusia [Unknown]
  - Vision blurred [Not Recovered/Not Resolved]
  - Decreased appetite [Unknown]
  - Throat irritation [Recovered/Resolved]
